FAERS Safety Report 15828717 (Version 1)
Quarter: 2019Q1

REPORT INFORMATION
  Report Type: Spontaneous
  Country: US (occurrence: US)
  Receive Date: 20190115
  Receipt Date: 20190115
  Transmission Date: 20190417
  Serious: No
  Sender: FDA-Public Use
  Company Number: US-ALLERGAN-1804605US

PATIENT
  Sex: Female

DRUGS (4)
  1. SYSTANE (HYPROMELLOSE 2910 (4000 MPA.S)) [Concomitant]
     Active Substance: HYPROMELLOSE 2910 (4000 MPA.S)
     Indication: PRODUCT USED FOR UNKNOWN INDICATION
     Dosage: UNK, PRN, 1-2 DAILY
     Route: 065
  2. RESTASIS [Suspect]
     Active Substance: CYCLOSPORINE
     Indication: DRY EYE
     Dosage: 2 GTT, QD(MORNING)
     Route: 047
     Dates: start: 2008
  3. RESTASIS [Suspect]
     Active Substance: CYCLOSPORINE
     Dosage: 2 GTT, QD
     Route: 047
     Dates: start: 2008
  4. RESTASIS [Suspect]
     Active Substance: CYCLOSPORINE
     Dosage: 2 GTT, QD
     Route: 047
     Dates: start: 2008

REACTIONS (7)
  - Product dropper issue [Unknown]
  - Product contamination [Unknown]
  - Product packaging quantity issue [Unknown]
  - Vitreous floaters [Unknown]
  - Accidental exposure to product [Unknown]
  - Eye irritation [Unknown]
  - Product container issue [Unknown]
